FAERS Safety Report 16744785 (Version 2)
Quarter: 2020Q4

REPORT INFORMATION
  Report Type: Report from Study
  Country: US (occurrence: US)
  Receive Date: 20190827
  Receipt Date: 20201103
  Transmission Date: 20210113
  Serious: Yes (Other)
  Sender: FDA-Public Use
  Company Number: US-JNJFOC-20190208695

PATIENT
  Age: 82 Year
  Sex: Female
  Weight: 58 kg

DRUGS (29)
  1. PANTOPRAZOLE [Concomitant]
     Active Substance: PANTOPRAZOLE
  2. IMBRUVICA [Suspect]
     Active Substance: IBRUTINIB
     Route: 048
     Dates: start: 20190107
  3. MAGNESIUM [Concomitant]
     Active Substance: MAGNESIUM
     Dosage: UNK
  4. LEVOFLOXACIN. [Suspect]
     Active Substance: LEVOFLOXACIN
     Indication: PRODUCT USED FOR UNKNOWN INDICATION
     Dosage: UNK 10 DAYS
     Route: 065
     Dates: start: 2019
  5. METOPROLOL. [Suspect]
     Active Substance: METOPROLOL
     Indication: PRODUCT USED FOR UNKNOWN INDICATION
     Route: 065
  6. GABAPENTIN. [Concomitant]
     Active Substance: GABAPENTIN
  7. PROTONIX [Concomitant]
     Active Substance: PANTOPRAZOLE SODIUM
  8. PLAVIX [Concomitant]
     Active Substance: CLOPIDOGREL BISULFATE
  9. IMBRUVICA [Suspect]
     Active Substance: IBRUTINIB
     Route: 048
     Dates: start: 20190103
  10. IMBRUVICA [Suspect]
     Active Substance: IBRUTINIB
     Route: 048
     Dates: start: 20190327
  11. ZOLPIDEM [Concomitant]
     Active Substance: ZOLPIDEM TARTRATE
     Dosage: UNK, PRN
  12. ROSUVASTATIN. [Concomitant]
     Active Substance: ROSUVASTATIN
  13. FLUTICASONE. [Concomitant]
     Active Substance: FLUTICASONE
  14. VITAMIN D3 [Concomitant]
     Active Substance: CHOLECALCIFEROL
     Dosage: UNK
  15. IMBRUVICA [Suspect]
     Active Substance: IBRUTINIB
     Route: 048
     Dates: start: 20190101
  16. IMBRUVICA [Suspect]
     Active Substance: IBRUTINIB
     Route: 048
     Dates: start: 2019, end: 20190729
  17. RANITIDINE. [Concomitant]
     Active Substance: RANITIDINE
  18. LISINOPRIL. [Concomitant]
     Active Substance: LISINOPRIL
  19. MULTIVITAMIN                       /00097801/ [Concomitant]
     Active Substance: VITAMINS
     Dosage: UNK
  20. TRIPLE ANTIBIOTIC                  /00038301/ [Concomitant]
     Active Substance: BACITRACIN\NEOMYCIN SULFATE\POLYMYXIN B SULFATE
  21. LINEZOLID. [Concomitant]
     Active Substance: LINEZOLID
  22. IMBRUVICA [Suspect]
     Active Substance: IBRUTINIB
     Indication: CHRONIC LYMPHOCYTIC LEUKAEMIA
     Route: 048
     Dates: start: 20190105
  23. IMBRUVICA [Suspect]
     Active Substance: IBRUTINIB
     Route: 048
     Dates: start: 20190104, end: 2019
  24. NORTRIPTYLINE [Concomitant]
     Active Substance: NORTRIPTYLINE
  25. AMLODIPINE [Concomitant]
     Active Substance: AMLODIPINE BESYLATE
  26. ASPIRIN. [Concomitant]
     Active Substance: ASPIRIN
     Dosage: UNK
  27. CORTISONE [Concomitant]
     Active Substance: CORTISONE
     Dosage: UNK
  28. SPECIAL MOUTHWASH [Concomitant]
     Dosage: UNK
  29. MONISTAT [Concomitant]
     Active Substance: MICONAZOLE NITRATE
     Dosage: UNK

REACTIONS (28)
  - Abnormal organ growth [Unknown]
  - Bronchitis [Recovering/Resolving]
  - Mucosal inflammation [Recovered/Resolved]
  - Hiatus hernia [Not Recovered/Not Resolved]
  - Blister [Unknown]
  - Decreased appetite [Recovering/Resolving]
  - Rash macular [Recovering/Resolving]
  - Gingival bleeding [Not Recovered/Not Resolved]
  - Skin ulcer [Not Recovered/Not Resolved]
  - Tremor [Not Recovered/Not Resolved]
  - Joint swelling [Unknown]
  - Body height decreased [Not Recovered/Not Resolved]
  - Oral mucosal blistering [Unknown]
  - Scab [Recovered/Resolved]
  - Oral pain [Not Recovered/Not Resolved]
  - Laryngitis [Recovering/Resolving]
  - Peripheral swelling [Not Recovered/Not Resolved]
  - Mouth ulceration [Not Recovered/Not Resolved]
  - Skin discolouration [Not Recovered/Not Resolved]
  - Weight decreased [Not Recovered/Not Resolved]
  - Lip ulceration [Not Recovered/Not Resolved]
  - Skin exfoliation [Not Recovered/Not Resolved]
  - Rash papular [Unknown]
  - Oral mucosal eruption [Unknown]
  - Dry skin [Not Recovered/Not Resolved]
  - Nausea [Not Recovered/Not Resolved]
  - Illness [Unknown]
  - Pyrexia [Recovered/Resolved]

NARRATIVE: CASE EVENT DATE: 201901
